FAERS Safety Report 25414492 (Version 3)
Quarter: 2025Q4

REPORT INFORMATION
  Report Type: Spontaneous
  Country: US (occurrence: US)
  Receive Date: 20250609
  Receipt Date: 20251107
  Transmission Date: 20260117
  Serious: No
  Sender: SANOFI AVENTIS
  Company Number: US-SA-2025SA162376

PATIENT
  Age: 56 Year
  Sex: Female

DRUGS (2)
  1. DUPIXENT [Suspect]
     Active Substance: DUPILUMAB
     Indication: Asthma
     Dosage: 300 MG, QOW
     Route: 058
     Dates: start: 202406
  2. DUPIXENT [Suspect]
     Active Substance: DUPILUMAB
     Indication: Nasal polyps

REACTIONS (8)
  - Swelling [Unknown]
  - Hordeolum [Unknown]
  - Erythema of eyelid [Unknown]
  - Pruritus [Unknown]
  - Eye irritation [Unknown]
  - Eye discharge [Unknown]
  - Throat irritation [Unknown]
  - Dysphagia [Unknown]
